FAERS Safety Report 7580847-3 (Version None)
Quarter: 2011Q2

REPORT INFORMATION
  Report Type: 
  Country: None (occurrence: None)
  Receive Date: 20110629
  Receipt Date: 20110615
  Transmission Date: 20111010
  Serious: Yes (Death, Hospitalization)
  Sender: FDA-Public Use
  Company Number: IT-BAYER-2011-051947

PATIENT
  Age: 66 Year
  Sex: Male

DRUGS (1)
  1. NEXAVAR [Suspect]
     Indication: HEPATIC NEOPLASM MALIGNANT NON-RESECTABLE
     Dosage: DAILY DOSE 800 MG
     Route: 048
     Dates: start: 20110420, end: 20110531

REACTIONS (6)
  - NAUSEA [None]
  - JAUNDICE [None]
  - PYREXIA [None]
  - HEPATIC FAILURE [None]
  - HEPATITIS ACUTE [None]
  - DIARRHOEA [None]
